FAERS Safety Report 5411109-8 (Version None)
Quarter: 2007Q3

REPORT INFORMATION
  Report Type: 
  Country: None (occurrence: None)
  Receive Date: 20070810
  Receipt Date: 20070618
  Transmission Date: 20080115
  Serious: Yes (Hospitalization, Other)
  Sender: FDA-Public Use
  Company Number: US-PURDUE-USA_2007_0028011

PATIENT
  Sex: Male
  Weight: 54 kg

DRUGS (2)
  1. OXYCONTIN [Suspect]
     Indication: BACK PAIN
     Dosage: 40 MG, TID
     Dates: start: 20000101, end: 20010101
  2. LORCET-HD [Concomitant]

REACTIONS (20)
  - ACTIVITIES OF DAILY LIVING IMPAIRED [None]
  - ANXIETY [None]
  - CAROTID ARTERY DISEASE [None]
  - CEREBROVASCULAR ACCIDENT [None]
  - DEPRESSED MOOD [None]
  - DEPRESSION [None]
  - DIABETES MELLITUS [None]
  - DRUG ABUSER [None]
  - DRUG DEPENDENCE [None]
  - DYSPHAGIA [None]
  - HEART RATE INCREASED [None]
  - HEMIPLEGIA [None]
  - INJURY [None]
  - INSOMNIA [None]
  - MOOD SWINGS [None]
  - PAIN [None]
  - PALPITATIONS [None]
  - ROAD TRAFFIC ACCIDENT [None]
  - VISUAL ACUITY REDUCED [None]
  - WEIGHT DECREASED [None]
